FAERS Safety Report 15061097 (Version 1)
Quarter: 2018Q2

REPORT INFORMATION
  Report Type: Spontaneous
  Country: US (occurrence: US)
  Receive Date: 20180605
  Receipt Date: 20180605
  Transmission Date: 20180711
  Serious: No
  Sender: FDA-Public Use
  Company Number: None

PATIENT
  Age: 38 Year
  Sex: Male

DRUGS (1)
  1. COPAXONE [Suspect]
     Active Substance: GLATIRAMER ACETATE
     Dates: start: 20180605, end: 20180605

REACTIONS (5)
  - Paraesthesia [None]
  - Insomnia [None]
  - Headache [None]
  - Hypoaesthesia [None]
  - Stress [None]

NARRATIVE: CASE EVENT DATE: 20180605
